FAERS Safety Report 5038050-7 (Version None)
Quarter: 2006Q2

REPORT INFORMATION
  Report Type: 
  Country: None (occurrence: None)
  Receive Date: 20060601
  Receipt Date: 20060201
  Transmission Date: 20061013
  Serious: No
  Sender: FDA-Public Use
  Company Number: 2006PV007971

PATIENT
  Age: 57 Year
  Sex: Female
  Weight: 107.5025 kg

DRUGS (5)
  1. BYETTA [Suspect]
     Indication: DIABETES MELLITUS NON-INSULIN-DEPENDENT
     Dosage: 10 MCG;BID;SC, 5MCG;BID;SC
     Route: 058
     Dates: start: 20050801, end: 20051102
  2. BYETTA [Suspect]
     Indication: DIABETES MELLITUS NON-INSULIN-DEPENDENT
     Dosage: 10 MCG;BID;SC, 5MCG;BID;SC
     Route: 058
     Dates: start: 20051103
  3. AVANDIA [Concomitant]
  4. METFORMIN [Concomitant]
  5. ALPHA LIPOIC ACID [Concomitant]

REACTIONS (1)
  - INJECTION SITE ERYTHEMA [None]
